FAERS Safety Report 21937529 (Version 1)
Quarter: 2023Q1

REPORT INFORMATION
  Report Type: Spontaneous
  Country: US (occurrence: None)
  Receive Date: 20230201
  Receipt Date: 20230201
  Transmission Date: 20230417
  Serious: No
  Sender: FDA-Public Use
  Company Number: None

PATIENT

DRUGS (3)
  1. ELIQUIS [Suspect]
     Active Substance: APIXABAN
  2. SYMTUZA [Suspect]
     Active Substance: COBICISTAT\DARUNAVIR\EMTRICITABINE\TENOFOVIR ALAFENAMIDE
  3. POSACONAZOLE [Suspect]
     Active Substance: POSACONAZOLE

REACTIONS (8)
  - Drug interaction [None]
  - Fall [None]
  - Injury [None]
  - Haemorrhage [None]
  - Contraindicated product administered [None]
  - Device computer issue [None]
  - Haemoglobin decreased [None]
  - Transcription medication error [None]
